FAERS Safety Report 6295321-4 (Version None)
Quarter: 2009Q3

REPORT INFORMATION
  Report Type: 
  Country: None (occurrence: None)
  Receive Date: 20090803
  Receipt Date: 20090720
  Transmission Date: 20100115
  Serious: Yes (Hospitalization, Other)
  Sender: FDA-Public Use
  Company Number: IN-MYLANLABS-2009S1012773

PATIENT
  Age: 26 Year
  Sex: Female

DRUGS (3)
  1. FLUCONAZOLE [Suspect]
     Indication: CANDIDIASIS
     Route: 048
  2. FLUCONAZOLE [Suspect]
     Route: 042
  3. CALCIUM [Concomitant]
     Route: 041

REACTIONS (2)
  - CARDIAC ARREST [None]
  - TORSADE DE POINTES [None]
